FAERS Safety Report 14292987 (Version 2)
Quarter: 2017Q4

REPORT INFORMATION
  Report Type: Report from Study
  Country: US (occurrence: BR)
  Receive Date: 20171215
  Receipt Date: 20171229
  Transmission Date: 20180321
  Serious: Yes (Hospitalization, Other)
  Sender: FDA-Public Use
  Company Number: US-SUNOVION-2017SUN005317

PATIENT
  Sex: Male
  Weight: 80 kg

DRUGS (1)
  1. INDACATEROL AND GLYCOPYRROLATE [Suspect]
     Active Substance: GLYCOPYRROLATE\INDACATEROL MALEATE
     Indication: RESPIRATORY FAILURE
     Dosage: 1 DF, QD  (110/50UG)
     Route: 055

REACTIONS (3)
  - Renal failure [Unknown]
  - Dyspnoea [Unknown]
  - Product use in unapproved indication [Unknown]
